FAERS Safety Report 25455715 (Version 1)
Quarter: 2025Q2

REPORT INFORMATION
  Report Type: Spontaneous
  Country: IT (occurrence: US)
  Receive Date: 20250619
  Receipt Date: 20250619
  Transmission Date: 20250716
  Serious: Yes (Death, Other)
  Sender: AZURITY PHARMACEUTICALS
  Company Number: IT-AZURITY PHARMACEUTICALS, INC.-AZR202506-001652

PATIENT
  Age: 65 Year

DRUGS (2)
  1. VERAPAMIL HYDROCHLORIDE [Suspect]
     Active Substance: VERAPAMIL HYDROCHLORIDE
     Indication: Product used for unknown indication
     Route: 065
  2. COCAINE [Suspect]
     Active Substance: COCAINE
     Indication: Product used for unknown indication
     Route: 065

REACTIONS (1)
  - Completed suicide [Fatal]
